FAERS Safety Report 5258144-0 (Version None)
Quarter: 2007Q1

REPORT INFORMATION
  Report Type: 
  Country: None (occurrence: None)
  Receive Date: 20070307
  Receipt Date: 20070306
  Transmission Date: 20070707
  Serious: Yes (Congenital Anomaly)
  Sender: FDA-Public Use
  Company Number: DK-ROXANE LABORATORIES, INC-2007-DE-01377GD

PATIENT

DRUGS (6)
  1. ACETAMINOPHEN W/ CODEINE [Suspect]
     Route: 015
  2. PREDNISONE [Suspect]
     Route: 015
  3. AZATHIOPRINE [Suspect]
     Route: 015
  4. CIMETIDINE HCL [Suspect]
     Route: 015
  5. METOCLOPRAMIDE [Suspect]
     Route: 015
  6. PENICILLIN [Suspect]
     Route: 015

REACTIONS (1)
  - CONGENITAL MUSCULOSKELETAL ANOMALY [None]
